FAERS Safety Report 8269666-2 (Version None)
Quarter: 2012Q2

REPORT INFORMATION
  Report Type: 
  Country: None (occurrence: None)
  Receive Date: 20120405
  Receipt Date: 20120322
  Transmission Date: 20120825
  Serious: Yes (Other)
  Sender: FDA-Public Use
  Company Number: 20120166

PATIENT
  Age: 51 Year
  Sex: Male

DRUGS (1)
  1. DEXAMETHASONE SODIUM PHOSPHATE [Suspect]
     Indication: RADICULAR PAIN
     Dosage: 2 ML/10 MG EPIDURAL
     Route: 008

REACTIONS (4)
  - PERINEAL PAIN [None]
  - OFF LABEL USE [None]
  - PRURITUS [None]
  - INCORRECT ROUTE OF DRUG ADMINISTRATION [None]
